FAERS Safety Report 8814551 (Version 4)
Quarter: 2013Q1

REPORT INFORMATION
  Report Type: Spontaneous
  Country: US (occurrence: None)
  Receive Date: 20120925
  Receipt Date: 20130114
  Transmission Date: 20140127
  Serious: Yes (Hospitalization, Other)
  Sender: FDA-Public Use
  Company Number: ADR-2012-01749

PATIENT
  Sex: Male

DRUGS (2)
  1. LIORESAL [Suspect]
     Indication: MUSCLE SPASTICITY
  2. LIORESAL [Suspect]
     Indication: CEREBRAL PALSY

REACTIONS (8)
  - Drug withdrawal syndrome [None]
  - Drug effect decreased [None]
  - Overdose [None]
  - Somnolence [None]
  - Muscle spasticity [None]
  - Blood creatine phosphokinase increased [None]
  - Underdose [None]
  - Device leakage [None]
